FAERS Safety Report 13893975 (Version 1)
Quarter: 2017Q3

REPORT INFORMATION
  Report Type: Spontaneous
  Country: US (occurrence: US)
  Receive Date: 20170822
  Receipt Date: 20170822
  Transmission Date: 20171127
  Serious: Yes (Hospitalization)
  Sender: FDA-Public Use
  Company Number: US-ACTELION-A-NJ2017-158340

PATIENT
  Age: 46 Year
  Sex: Female
  Weight: 70.3 kg

DRUGS (5)
  1. REMODULIN [Suspect]
     Active Substance: TREPROSTINIL
     Indication: PULMONARY ARTERIAL HYPERTENSION
     Dosage: 0.054 ?G/KG, UNK
     Route: 041
     Dates: start: 20130104
  2. OPSUMIT [Suspect]
     Active Substance: MACITENTAN
     Indication: PRODUCT USED FOR UNKNOWN INDICATION
     Route: 048
  3. AMLODIPINE [Concomitant]
     Active Substance: AMLODIPINE BESYLATE
  4. REMODULIN [Suspect]
     Active Substance: TREPROSTINIL
     Dosage: 0.046 ?G/KG, UNK
     Route: 041
     Dates: start: 20161220
  5. SILDENAFIL CITRATE. [Concomitant]
     Active Substance: SILDENAFIL CITRATE

REACTIONS (5)
  - Pulmonary oedema [Unknown]
  - Oxygen consumption increased [Unknown]
  - Pulmonary veno-occlusive disease [Unknown]
  - Chest pain [Unknown]
  - Therapy non-responder [Unknown]

NARRATIVE: CASE EVENT DATE: 20170503
